FAERS Safety Report 5151409-2 (Version None)
Quarter: 2006Q4

REPORT INFORMATION
  Report Type: 
  Country: None (occurrence: None)
  Receive Date: 20061115
  Receipt Date: 20061006
  Transmission Date: 20070319
  Serious: Yes (Hospitalization)
  Sender: FDA-Public Use
  Company Number: GB-ELI_LILLY_AND_COMPANY-GB200610001300

PATIENT
  Age: 53 Year
  Sex: Female

DRUGS (4)
  1. FLUOXETINE [Suspect]
     Indication: DEPRESSION
     Dosage: 40 MG, UNK
     Route: 048
     Dates: start: 20060818, end: 20060830
  2. FLUOXETINE [Suspect]
     Dosage: 20 MG, UNK
     Route: 048
     Dates: start: 20060731, end: 20060818
  3. PREDNISOLONE [Concomitant]
     Indication: POLYARTHRITIS
     Dosage: 20 MG, UNK
     Route: 048
     Dates: start: 20060904, end: 20060910
  4. ACETAMINOPHEN [Concomitant]
     Indication: PAIN
     Dosage: 1 G, 4/D
     Route: 048

REACTIONS (2)
  - POLYARTHRITIS [None]
  - RASH [None]
